FAERS Safety Report 19377258 (Version 1)
Quarter: 2021Q2

REPORT INFORMATION
  Report Type: Spontaneous
  Country: FR (occurrence: FR)
  Receive Date: 20210604
  Receipt Date: 20210604
  Transmission Date: 20210717
  Serious: Yes (Other)
  Sender: FDA-Public Use
  Company Number: FR-TEVA-2021-FR-1916234

PATIENT
  Age: 55 Year
  Sex: Female
  Weight: 40 kg

DRUGS (3)
  1. AZITHROMYCINE [Suspect]
     Active Substance: AZITHROMYCIN
     Indication: ATYPICAL MYCOBACTERIAL INFECTION
     Dosage: UNSPECIFIED
     Route: 048
     Dates: start: 20210426, end: 20210503
  2. CHLORHYDRATE D^ETHAMBUTOL [Suspect]
     Active Substance: ETHAMBUTOL HYDROCHLORIDE
     Indication: ATYPICAL MYCOBACTERIAL INFECTION
     Dosage: UNSPECIFIED
     Route: 048
     Dates: start: 20210426, end: 20210503
  3. RIFAMPICINE [Suspect]
     Active Substance: RIFAMPIN
     Indication: ATYPICAL MYCOBACTERIAL INFECTION
     Dosage: UNSPECIFIED
     Route: 048
     Dates: start: 20210426, end: 20210503

REACTIONS (1)
  - Mixed liver injury [Recovering/Resolving]

NARRATIVE: CASE EVENT DATE: 20210428
